FAERS Safety Report 24093421 (Version 1)
Quarter: 2024Q3

REPORT INFORMATION
  Report Type: Spontaneous
  Country: US (occurrence: US)
  Receive Date: 20240715
  Receipt Date: 20240715
  Transmission Date: 20241017
  Serious: No
  Sender: FOUNDATION CONSUMER HEALTHCARE
  Company Number: US-FOUNDATIONCONSUMERHC-2024-US-031146

PATIENT
  Age: 32 Year
  Sex: Female
  Weight: 56.7 kg

DRUGS (2)
  1. AFTERA [Suspect]
     Active Substance: LEVONORGESTREL
     Indication: Post coital contraception
     Dosage: PLAN B 1.5 MG X UNSPECIFIED NUMBER OF DOSES AND AFTERA ONCE ON 15-MAY-2024
     Route: 048
     Dates: end: 20240515
  2. Women^s One A Day Vitamin [Concomitant]

REACTIONS (4)
  - Vaginal haemorrhage [Not Recovered/Not Resolved]
  - Abdominal pain upper [Unknown]
  - Abdominal pain upper [Unknown]
  - Vaginal haemorrhage [Recovered/Resolved]

NARRATIVE: CASE EVENT DATE: 20231101
